FAERS Safety Report 9617675 (Version 1)
Quarter: 2013Q4

REPORT INFORMATION
  Report Type: Spontaneous
  Country: GB (occurrence: GB)
  Receive Date: 20131011
  Receipt Date: 20131011
  Transmission Date: 20140711
  Serious: Yes (Disabling)
  Sender: FDA-Public Use
  Company Number: GB-ELI_LILLY_AND_COMPANY-GB201310000212

PATIENT
  Age: 72 Year
  Sex: Female

DRUGS (1)
  1. FORSTEO [Suspect]
     Indication: OSTEOPOROSIS POSTMENOPAUSAL
     Dosage: 20 UG, UNK
     Dates: start: 20130703, end: 20130828

REACTIONS (3)
  - Back pain [Recovering/Resolving]
  - Muscle spasms [Recovered/Resolved]
  - Mobility decreased [Recovered/Resolved]
